FAERS Safety Report 12599093 (Version 1)
Quarter: 2016Q3

REPORT INFORMATION
  Report Type: Spontaneous
  Country: HR (occurrence: HR)
  Receive Date: 20160727
  Receipt Date: 20160727
  Transmission Date: 20161109
  Serious: Yes (Life-Threatening, Other)
  Sender: FDA-Public Use
  Company Number: HR-TEVA-678359ACC

PATIENT
  Age: 45 Year
  Sex: Female

DRUGS (6)
  1. SULPIRID [Suspect]
     Active Substance: SULPIRIDE
     Route: 048
     Dates: start: 20160115, end: 20160115
  2. AMLOPIN [Suspect]
     Active Substance: AMLODIPINE BESYLATE
     Route: 048
     Dates: start: 20160115, end: 20160115
  3. ZALDIAR [Suspect]
     Active Substance: ACETAMINOPHEN\TRAMADOL HYDROCHLORIDE
     Dosage: 1 DF = 325 MG PARACETAMOL + 37.5 MG TRAMADOL
     Route: 048
     Dates: start: 20160115, end: 20160115
  4. ASKA [Suspect]
     Active Substance: ASPIRIN
     Route: 048
     Dates: start: 20160115, end: 20160115
  5. HELEX [Suspect]
     Active Substance: ALPRAZOLAM
     Route: 048
     Dates: start: 20160115, end: 20160115
  6. TEGRETOL [Suspect]
     Active Substance: CARBAMAZEPINE
     Route: 048
     Dates: start: 20160115, end: 20160115

REACTIONS (4)
  - Coma [Unknown]
  - Respiratory failure [Unknown]
  - Hypotension [Unknown]
  - Overdose [Unknown]

NARRATIVE: CASE EVENT DATE: 20160115
